FAERS Safety Report 6778360 (Version 5)
Quarter: 2015Q2

REPORT INFORMATION
  Report Type: Spontaneous
  Country: US (occurrence: US)
  Receive Date: 20081003
  Receipt Date: 20150515
  Transmission Date: 20150821
  Serious: Yes (Hospitalization, Other)
  Sender: FDA-Public Use
  Company Number: US-BAXTER-2008BH010026

PATIENT
  Age: 38 Year
  Sex: Female

DRUGS (46)
  1. GAMMAGARD LIQUID [Suspect]
     Active Substance: HUMAN IMMUNOGLOBULIN G
     Indication: OFF LABEL USE
     Route: 065
     Dates: start: 20070718, end: 20070721
  2. VENOGLOBULIN [Suspect]
     Active Substance: HUMAN IMMUNOGLOBULIN G
     Route: 065
     Dates: start: 20031007, end: 20031008
  3. PANGLOBULIN NF [Suspect]
     Active Substance: HUMAN IMMUNOGLOBULIN G
     Route: 042
     Dates: start: 20070320
  4. GAMMAR [Suspect]
     Active Substance: HUMAN IMMUNOGLOBULIN G
     Indication: POLYMYOSITIS
     Route: 065
     Dates: start: 20031007, end: 20031008
  5. SOLU-MEDROL [Concomitant]
     Active Substance: METHYLPREDNISOLONE SODIUM SUCCINATE
     Indication: PREMEDICATION
     Route: 048
     Dates: start: 200707
  6. GAMMAGARD S/D [Suspect]
     Active Substance: HUMAN IMMUNOGLOBULIN G
     Route: 042
     Dates: start: 20070701
  7. VENOGLOBULIN [Suspect]
     Active Substance: HUMAN IMMUNOGLOBULIN G
     Route: 065
     Dates: start: 20030905
  8. PREDNISONE. [Concomitant]
     Active Substance: PREDNISONE
     Indication: POLYMYOSITIS
     Route: 065
  9. GAMMAGARD S/D [Suspect]
     Active Substance: HUMAN IMMUNOGLOBULIN G
     Route: 042
     Dates: start: 20080605, end: 20080606
  10. GAMMAGARD LIQUID [Suspect]
     Active Substance: HUMAN IMMUNOGLOBULIN G
     Route: 065
     Dates: start: 20080402, end: 20080404
  11. VENOGLOBULIN [Suspect]
     Active Substance: HUMAN IMMUNOGLOBULIN G
     Route: 065
     Dates: start: 20030731
  12. GAMMAR [Suspect]
     Active Substance: HUMAN IMMUNOGLOBULIN G
     Route: 065
     Dates: start: 20031222
  13. BENADRYL [Concomitant]
     Active Substance: DIPHENHYDRAMINE HYDROCHLORIDE
     Indication: PREMEDICATION
     Route: 048
     Dates: start: 200707
  14. FERROUS SULFATE [Concomitant]
     Active Substance: FERROUS SULFATE\FERROUS SULFATE, DRIED
     Indication: IRON DEFICIENCY ANAEMIA
     Route: 048
  15. VITAMIN D [Concomitant]
     Active Substance: CHOLECALCIFEROL
     Indication: OSTEOPOROSIS
     Route: 065
  16. GAMMAGARD LIQUID [Suspect]
     Active Substance: HUMAN IMMUNOGLOBULIN G
     Indication: POLYMYOSITIS
     Route: 065
     Dates: start: 20070701
  17. GAMMAGARD LIQUID [Suspect]
     Active Substance: HUMAN IMMUNOGLOBULIN G
     Route: 065
     Dates: start: 20080215
  18. VENOGLOBULIN [Suspect]
     Active Substance: HUMAN IMMUNOGLOBULIN G
     Indication: POLYMYOSITIS
     Route: 065
     Dates: start: 20030630
  19. GAMMAR [Suspect]
     Active Substance: HUMAN IMMUNOGLOBULIN G
     Route: 065
     Dates: start: 20040928, end: 20040930
  20. GAMMAGARD S/D [Suspect]
     Active Substance: HUMAN IMMUNOGLOBULIN G
     Route: 042
  21. GAMMAGARD LIQUID [Suspect]
     Active Substance: HUMAN IMMUNOGLOBULIN G
     Route: 065
     Dates: start: 20080605, end: 20080606
  22. GAMMAR [Suspect]
     Active Substance: HUMAN IMMUNOGLOBULIN G
     Route: 065
     Dates: start: 20041027, end: 20041029
  23. GAMMAR [Suspect]
     Active Substance: HUMAN IMMUNOGLOBULIN G
     Route: 065
     Dates: start: 20041221, end: 20041223
  24. IMURAN [Concomitant]
     Active Substance: AZATHIOPRINE
     Indication: POLYMYOSITIS
     Route: 065
     Dates: start: 200501, end: 200502
  25. VITAMIN B12 [Concomitant]
     Active Substance: CYANOCOBALAMIN
     Indication: IRON DEFICIENCY ANAEMIA
     Route: 048
  26. VENOGLOBULIN [Suspect]
     Active Substance: HUMAN IMMUNOGLOBULIN G
     Route: 065
     Dates: start: 20030701, end: 20030702
  27. VENOGLOBULIN [Suspect]
     Active Substance: HUMAN IMMUNOGLOBULIN G
     Route: 065
     Dates: start: 20030811, end: 20030813
  28. VITAMIN C [Concomitant]
     Active Substance: ASCORBIC ACID
     Indication: PRODUCT USED FOR UNKNOWN INDICATION
     Route: 048
  29. GAMMAGARD S/D [Suspect]
     Active Substance: HUMAN IMMUNOGLOBULIN G
     Indication: POLYMYOSITIS
     Route: 042
     Dates: start: 20080107
  30. GAMMAGARD S/D [Suspect]
     Active Substance: HUMAN IMMUNOGLOBULIN G
     Indication: OFF LABEL USE
     Route: 042
     Dates: start: 20080215
  31. GAMMAGARD S/D [Suspect]
     Active Substance: HUMAN IMMUNOGLOBULIN G
     Route: 042
     Dates: start: 20080402, end: 20080404
  32. GAMMAGARD LIQUID [Suspect]
     Active Substance: HUMAN IMMUNOGLOBULIN G
     Route: 065
     Dates: start: 20080107
  33. VENOGLOBULIN [Suspect]
     Active Substance: HUMAN IMMUNOGLOBULIN G
     Route: 065
     Dates: start: 20030908, end: 20030910
  34. VENOGLOBULIN [Suspect]
     Active Substance: HUMAN IMMUNOGLOBULIN G
     Route: 065
     Dates: start: 20030922
  35. VENOGLOBULIN [Suspect]
     Active Substance: HUMAN IMMUNOGLOBULIN G
     Route: 065
     Dates: start: 20031110, end: 20031112
  36. CARIMUNE NF [Suspect]
     Active Substance: HUMAN IMMUNOGLOBULIN G
     Indication: POLYMYOSITIS
     Route: 065
     Dates: start: 20070321, end: 20070324
  37. GAMMAR [Suspect]
     Active Substance: HUMAN IMMUNOGLOBULIN G
     Route: 065
     Dates: start: 20031111, end: 20031112
  38. TYLENOL [Concomitant]
     Active Substance: ACETAMINOPHEN
     Indication: PREMEDICATION
     Route: 048
     Dates: start: 200707
  39. CALCIUM CARBONATE. [Concomitant]
     Active Substance: CALCIUM CARBONATE
     Indication: OSTEOPOROSIS
     Route: 048
  40. MINOCIN [Concomitant]
     Active Substance: MINOCYCLINE HYDROCHLORIDE
     Indication: ACNE
     Route: 065
  41. GAMMAGARD S/D [Suspect]
     Active Substance: HUMAN IMMUNOGLOBULIN G
     Route: 042
     Dates: start: 20070718, end: 20070721
  42. VENOGLOBULIN [Suspect]
     Active Substance: HUMAN IMMUNOGLOBULIN G
     Route: 065
     Dates: start: 20031106
  43. PANGLOBULIN NF [Suspect]
     Active Substance: HUMAN IMMUNOGLOBULIN G
     Indication: POLYMYOSITIS
     Route: 065
     Dates: start: 20070321, end: 20070324
  44. GAMMAR [Suspect]
     Active Substance: HUMAN IMMUNOGLOBULIN G
     Route: 065
     Dates: start: 20031114
  45. METHOTREXATE [Concomitant]
     Active Substance: METHOTREXATE
     Indication: POLYMYOSITIS
     Route: 065
  46. CITALOPRAM [Concomitant]
     Active Substance: CITALOPRAM HYDROBROMIDE
     Indication: DEPRESSION
     Route: 048

REACTIONS (10)
  - Neurogenic shock [Unknown]
  - Atrial fibrillation [Not Recovered/Not Resolved]
  - Hepatitis C [Unknown]
  - Pulmonary hypertension [Unknown]
  - Hepatitis A antibody positive [Unknown]
  - Pain [Unknown]
  - Internal injury [Unknown]
  - Atrial flutter [Not Recovered/Not Resolved]
  - Hepatitis B surface antibody positive [Unknown]
  - Meningitis aseptic [Unknown]

NARRATIVE: CASE EVENT DATE: 20070321
